FAERS Safety Report 4279582-9 (Version None)
Quarter: 2004Q1

REPORT INFORMATION
  Report Type: 
  Country: None (occurrence: None)
  Receive Date: 20040123
  Receipt Date: 20040119
  Transmission Date: 20041129
  Serious: Yes (Other)
  Sender: FDA-Public Use
  Company Number: 2004194618DE

PATIENT
  Age: 80 Year
  Sex: Male

DRUGS (2)
  1. ZYVOXID 600MG (LINEZOLID)TABLET [Suspect]
     Dates: start: 20031201
  2. RAMIPRIL [Concomitant]

REACTIONS (2)
  - BLOOD PRESSURE INCREASED [None]
  - DRUG INTERACTION [None]
